FAERS Safety Report 9863482 (Version 1)
Quarter: 2014Q1

REPORT INFORMATION
  Report Type: Spontaneous
  Country: BR (occurrence: BR)
  Receive Date: 20140203
  Receipt Date: 20140203
  Transmission Date: 20141002
  Serious: Yes (Other)
  Sender: FDA-Public Use
  Company Number: BR-PFIZER INC-2014029066

PATIENT
  Age: 33 Year
  Sex: Female
  Weight: 69 kg

DRUGS (1)
  1. NORDETTE [Suspect]
     Indication: CONTRACEPTION
     Dosage: 1 DF (0.15MG/ 003MG), 1X/DAY
     Route: 048
     Dates: end: 201312

REACTIONS (9)
  - Hepatic neoplasm [Unknown]
  - Dengue fever [Unknown]
  - Pyelocaliectasis [Unknown]
  - Cholelithiasis [Unknown]
  - Drug ineffective [Unknown]
  - Unintended pregnancy [Unknown]
  - Headache [Unknown]
  - Dizziness [Unknown]
  - Vomiting [Unknown]
